FAERS Safety Report 20357701 (Version 1)
Quarter: 2022Q1

REPORT INFORMATION
  Report Type: Spontaneous
  Country: US (occurrence: None)
  Receive Date: 20220120
  Receipt Date: 20220120
  Transmission Date: 20220423
  Serious: Yes (Hospitalization)
  Sender: FDA-Public Use
  Company Number: None

PATIENT
  Age: 73 Year
  Sex: Female

DRUGS (10)
  1. CASIRIVIMAB\IMDEVIMAB [Suspect]
     Active Substance: CASIRIVIMAB\IMDEVIMAB
     Indication: COVID-19
     Dosage: OTHER FREQUENCY : ONCE;?
     Route: 058
     Dates: start: 20220106, end: 20220106
  2. methIMAzole (TAPAZOLE) 5 mg tablet [Concomitant]
  3. midodrine (PROAMATINE) 10 mg tablet [Concomitant]
  4. aspirin 81 mg tablet [Concomitant]
  5. furosemide (LASIX) 20 mg tablet [Concomitant]
  6. ondansetron ODT (ZOFRAN-ODT) 4 mg disintegrating tablet [Concomitant]
  7. amiODARone (PACERONE) 100 mg tablet [Concomitant]
  8. APIXaban (Eliquis) 5 mg tablet [Concomitant]
  9. atorvastatin (LIPITOR) 80 mg tablet [Concomitant]
  10. bisoprolol (ZEBETA) 5 mg tablet [Concomitant]

REACTIONS (8)
  - Oxygen saturation decreased [None]
  - Atrial fibrillation [None]
  - Acute respiratory failure [None]
  - Pneumonia [None]
  - C-reactive protein decreased [None]
  - Full blood count abnormal [None]
  - White blood cell count increased [None]
  - Lung cancer metastatic [None]

NARRATIVE: CASE EVENT DATE: 20220111
